FAERS Safety Report 5684536-1 (Version None)
Quarter: 2008Q1

REPORT INFORMATION
  Report Type: 
  Country: None (occurrence: None)
  Receive Date: 20080328
  Receipt Date: 20070307
  Transmission Date: 20080703
  Serious: Yes (Disabling, Other)
  Sender: FDA-Public Use
  Company Number: US-BRISTOL-MYERS SQUIBB COMPANY-13616453

PATIENT
  Age: 55 Year
  Sex: Female

DRUGS (4)
  1. ERBITUX [Suspect]
     Indication: NEOPLASM MALIGNANT
     Route: 042
     Dates: start: 20061011, end: 20061206
  2. CARBOPLATIN [Suspect]
     Indication: NEOPLASM MALIGNANT
     Dosage: CYCLE 1: 23-OCT-06 TO 27-OCT-06, CYCLE 2: 13-NOV-06 TO 16-NOV-06, CYCLE 3: 04-DEC-06 TO 08-DEC-06
     Route: 042
     Dates: start: 20061023, end: 20061208
  3. RADIATION THERAPY [Suspect]
     Indication: NEOPLASM MALIGNANT
     Dates: start: 20061026, end: 20061218
  4. FLUOROURACIL [Suspect]
     Indication: NEOPLASM MALIGNANT
     Dosage: CYCLE 1: 23-OCT-06 TO 27-OCT-06, CYCLE 2: 13-NOV-06 TO 16-NOV-06, CYCLE 3: 04-DEC-06 TO 08-DEC-06
     Route: 042
     Dates: start: 20061023, end: 20061208

REACTIONS (1)
  - RASH [None]
